FAERS Safety Report 5094232-X (Version None)
Quarter: 2006Q3

REPORT INFORMATION
  Report Type: 
  Country: None (occurrence: None)
  Receive Date: 20060831
  Receipt Date: 20060628
  Transmission Date: 20061208
  Serious: Yes (Other)
  Sender: FDA-Public Use
  Company Number: US-ROCHE-453798

PATIENT
  Age: 18 Year
  Sex: Male
  Weight: 56.7 kg

DRUGS (8)
  1. ACCUTANE [Suspect]
     Route: 048
     Dates: start: 20030824, end: 20031027
  2. ACCUTANE [Suspect]
     Route: 048
     Dates: start: 20031101, end: 20031104
  3. ACCUTANE [Suspect]
     Dosage: DOSAGE DECREASED.
     Route: 048
     Dates: start: 20031105, end: 20041114
  4. ACCUTANE [Suspect]
     Route: 048
     Dates: start: 20040118, end: 20040503
  5. ACCUTANE [Suspect]
     Dosage: DOSAGE DECREASED.
     Route: 048
     Dates: start: 20040504
  6. SOTRET [Suspect]
     Indication: ACNE
     Dosage: DOSAGE REGIMEN VARIED.
     Route: 048
  7. INSULIN [Concomitant]
     Route: 058
     Dates: start: 19980615
  8. SYNTHROID [Concomitant]
     Indication: HYPOTHYROIDISM
     Route: 048
     Dates: start: 19911215

REACTIONS (18)
  - ANAEMIA [None]
  - ANXIETY [None]
  - CROHN'S DISEASE [None]
  - DEPRESSION [None]
  - GASTROINTESTINAL NEOPLASM [None]
  - ILEITIS [None]
  - IRON DEFICIENCY ANAEMIA [None]
  - MICROCYTIC ANAEMIA [None]
  - MITRAL VALVE INCOMPETENCE [None]
  - MOOD ALTERED [None]
  - PERNICIOUS ANAEMIA [None]
  - PROTEINURIA [None]
  - PULMONARY VALVE INCOMPETENCE [None]
  - RENAL CYST [None]
  - SERUM FERRITIN INCREASED [None]
  - THALASSAEMIA TRAIT [None]
  - TRICUSPID VALVE INCOMPETENCE [None]
  - VITAMIN B12 DEFICIENCY [None]
